FAERS Safety Report 7539915-4 (Version None)
Quarter: 2011Q2

REPORT INFORMATION
  Report Type: 
  Country: None (occurrence: None)
  Receive Date: 20110610
  Receipt Date: 20110602
  Transmission Date: 20111010
  Serious: Yes (Hospitalization)
  Sender: FDA-Public Use
  Company Number: US-B.I. PHARMACEUTICALS,INC./RIDGEFIELD-2011-BP-14534BP

PATIENT
  Sex: Female

DRUGS (2)
  1. PRADAXA [Suspect]
     Indication: ATRIAL FIBRILLATION
     Dosage: 300 MG
     Route: 048
     Dates: start: 20110301
  2. ASPIRIN [Concomitant]
     Indication: ATRIAL FIBRILLATION

REACTIONS (4)
  - SKIN HAEMORRHAGE [None]
  - ATRIAL FIBRILLATION [None]
  - CARDIAC ABLATION [None]
  - HAEMORRHAGE [None]
